FAERS Safety Report 10213944 (Version 1)
Quarter: 2014Q2

REPORT INFORMATION
  Report Type: Spontaneous
  Country: IT (occurrence: None)
  Receive Date: 20140529
  Receipt Date: 20140529
  Transmission Date: 20141212
  Serious: Yes (Hospitalization)
  Sender: FDA-Public Use
  Company Number: E7389-03999-SPO-IT

PATIENT
  Age: 60 Year
  Sex: Female

DRUGS (6)
  1. HALAVEN [Suspect]
     Indication: BREAST CANCER
     Dosage: 1.8 MG, 2 IN 21 D, INTRAVENOUS
     Route: 042
     Dates: start: 20130327, end: 20130327
  2. RANIDIL [Suspect]
     Dosage: 2 IN 21 D
  3. HERCEPTIN [Suspect]
     Dosage: 30 MG, 2 IN 21 D
  4. KYTRIL [Suspect]
     Dosage: 2 IN 21 D
  5. LANSOPRAZOLE [Concomitant]
  6. DIBASE (COLECALCIFEROL) [Concomitant]

REACTIONS (3)
  - Vomiting [None]
  - Decreased appetite [None]
  - Hypertransaminasaemia [None]
